FAERS Safety Report 13592651 (Version 4)
Quarter: 2017Q3

REPORT INFORMATION
  Report Type: Report from Study
  Country: FR (occurrence: FR)
  Receive Date: 20170530
  Receipt Date: 20170908
  Transmission Date: 20171127
  Serious: Yes (Hospitalization, Other)
  Sender: FDA-Public Use
  Company Number: FR-REGENERON PHARMACEUTICALS, INC.-2017-16225

PATIENT

DRUGS (15)
  1. EYLEA [Suspect]
     Active Substance: AFLIBERCEPT
     Dosage: 50 ?L, ONCE
     Route: 031
     Dates: start: 20170526, end: 20170526
  2. EUPANTOL [Concomitant]
     Active Substance: PANTOPRAZOLE SODIUM
     Indication: CONCOMITANT DISEASE PROGRESSION
     Dosage: 40 MG, QD
     Route: 048
     Dates: start: 20150129
  3. NITRIDERM [Concomitant]
     Active Substance: NITROGLYCERIN
     Indication: CONCOMITANT DISEASE PROGRESSION
     Dosage: 10 MG, QD
     Route: 062
     Dates: start: 20150328
  4. BISOPROLOL [Concomitant]
     Active Substance: BISOPROLOL
     Indication: CONCOMITANT DISEASE PROGRESSION
     Dosage: 5 MG, QD
     Route: 048
     Dates: start: 20150129
  5. KARDEGIC [Concomitant]
     Active Substance: ASPIRIN LYSINE
     Indication: CONCOMITANT DISEASE PROGRESSION
     Dosage: 160 MG, QD
     Route: 048
     Dates: start: 20130402
  6. EYLEA [Suspect]
     Active Substance: AFLIBERCEPT
     Dosage: 50 ?L, ONCE (TOTAL 1 DOSE ) LAST INJECTION PRIOR THE EVENT
     Route: 031
     Dates: start: 20170725, end: 20170725
  7. GLIBENCLAMIDE [Concomitant]
     Active Substance: GLYBURIDE
     Indication: CONCOMITANT DISEASE PROGRESSION
     Dosage: 5 MG, QD
     Route: 048
     Dates: start: 20130326
  8. IKOREL [Concomitant]
     Active Substance: NICORANDIL
     Indication: CONCOMITANT DISEASE PROGRESSION
     Dosage: 10 MG, BID
     Route: 048
     Dates: start: 20150328
  9. RAMIPRIL. [Concomitant]
     Active Substance: RAMIPRIL
     Indication: CONCOMITANT DISEASE PROGRESSION
     Dosage: 5 MG, QD
     Route: 048
     Dates: start: 20150129
  10. EYLEA [Suspect]
     Active Substance: AFLIBERCEPT
     Dosage: 50 ?L, ONCE
     Route: 031
     Dates: start: 20170628, end: 20170628
  11. ATORVASTATIN [Concomitant]
     Active Substance: ATORVASTATIN
     Indication: CONCOMITANT DISEASE PROGRESSION
     Dosage: 80 MG, QD
     Route: 048
     Dates: start: 20150129
  12. BRILIQUE [Concomitant]
     Active Substance: TICAGRELOR
     Indication: CONCOMITANT DISEASE PROGRESSION
     Dosage: 90 MG, BID
     Route: 048
     Dates: start: 20150129, end: 20170427
  13. EYLEA [Suspect]
     Active Substance: AFLIBERCEPT
     Indication: DIABETIC RETINAL OEDEMA
     Dosage: 50 ?L, ONCE (TOTAL 1 DOSE ) LAST INJECTION PRIOR THE EVENT
     Route: 031
     Dates: start: 20170328, end: 20170328
  14. EYLEA [Suspect]
     Active Substance: AFLIBERCEPT
     Dosage: 50 ?L, ONCE
     Route: 031
     Dates: start: 20170428, end: 20170428
  15. ONGLYZA [Concomitant]
     Active Substance: SAXAGLIPTIN HYDROCHLORIDE
     Indication: CONCOMITANT DISEASE PROGRESSION
     Dosage: 5 MG, QD
     Route: 048
     Dates: start: 20150527

REACTIONS (1)
  - Coronary artery stenosis [Recovered/Resolved]

NARRATIVE: CASE EVENT DATE: 20170421
